FAERS Safety Report 7074395-7 (Version None)
Quarter: 2010Q4

REPORT INFORMATION
  Report Type: 
  Country: None (occurrence: None)
  Receive Date: 20101029
  Receipt Date: 20101021
  Transmission Date: 20110411
  Serious: Yes (Other)
  Sender: FDA-Public Use
  Company Number: US-JNJCH-2010024217

PATIENT
  Age: 88 Year
  Sex: Female
  Weight: 53.1 kg

DRUGS (11)
  1. PRECISE EXTRA STRENGTH PAIN RELIEVING CREAM [Suspect]
     Indication: MYALGIA
     Dosage: TEXT:QUARTER-SIZED AMOUNT ONCE
     Route: 061
     Dates: start: 20101017, end: 20101017
  2. RANEXA [Concomitant]
     Indication: ANGINA PECTORIS
     Dosage: TEXT:100MG 2X A DAY
     Route: 065
  3. NORVASC [Concomitant]
     Indication: HYPERTENSION
     Dosage: TEXT:10MG 1X A DAY
     Route: 065
  4. PRAVACHOL [Concomitant]
     Indication: BLOOD CHOLESTEROL INCREASED
     Dosage: TEXT:20MG 1X A DAY
     Route: 065
  5. SOTALOL [Concomitant]
     Indication: CARDIAC DISORDER
     Dosage: TEXT:80MG 1X A DAY
     Route: 065
  6. HYDRALAZINE [Concomitant]
     Indication: CARDIAC DISORDER
     Dosage: TEXT:20MG 2X A DAY
     Route: 065
  7. GLYBURIDE [Concomitant]
     Indication: DIABETES MELLITUS
     Dosage: TEXT:2.5MG 1X A DAY
     Route: 065
  8. COREG [Concomitant]
     Indication: CARDIAC DISORDER
     Dosage: TEXT:2X A DAY
     Route: 065
  9. PLAVIX [Concomitant]
     Indication: CARDIAC DISORDER
     Dosage: TEXT:75MG 1X A DAY
     Route: 065
  10. LASIX [Concomitant]
     Indication: CARDIAC DISORDER
     Dosage: TEXT:40MG 1X A DAY
     Route: 065
  11. SPIRONOLACTONE [Concomitant]
     Indication: CARDIAC DISORDER
     Dosage: TEXT:12.5MG 2X A DAY
     Route: 065

REACTIONS (3)
  - APPLICATION SITE BURN [None]
  - APPLICATION SITE ERYTHEMA [None]
  - APPLICATION SITE VESICLES [None]
